FAERS Safety Report 5267116-1 (Version None)
Quarter: 2007Q1

REPORT INFORMATION
  Report Type: 
  Country: None (occurrence: None)
  Receive Date: 20070316
  Receipt Date: 20070305
  Transmission Date: 20070707
  Serious: Yes (Hospitalization)
  Sender: FDA-Public Use
  Company Number: US-AMGEN-US213679

PATIENT
  Sex: Female

DRUGS (1)
  1. PALIFERMIN - BLINDED [Suspect]
     Indication: RADIATION DYSPHAGIA
     Route: 042
     Dates: start: 20070126

REACTIONS (1)
  - FEBRILE NEUTROPENIA [None]
